FAERS Safety Report 8950876 (Version 2)
Quarter: 2012Q4

REPORT INFORMATION
  Report Type: Spontaneous
  Country: JP (occurrence: None)
  Receive Date: 20121128
  Receipt Date: 20121214
  Transmission Date: 20130627
  Serious: Yes (Death)
  Sender: FDA-Public Use
  Company Number: TCI2012A06719

PATIENT
  Age: 63 Year
  Sex: Male

DRUGS (7)
  1. TAKEPRON [Suspect]
     Indication: PROPHYLAXIS AGAINST GASTROINTESTINAL ULCER
     Route: 048
     Dates: start: 20110203, end: 20110314
  2. BAYASPIRIN (ACETYLSALICYLIC ACID) [Concomitant]
  3. PLAVIX (CLOPIDOREL BISULFATE) [Concomitant]
  4. CRESTOR (ROSUVASTATIN CALCIUM) [Concomitant]
  5. NU-LOTAN (LOSARTAN POTASSIUM) [Concomitant]
  6. SIGMART (NICORANDIL) [Concomitant]
  7. MEXITIL (MEXILETINE HYDROCHLORIDE) [Concomitant]

REACTIONS (2)
  - Dyspnoea [None]
  - Cardio-respiratory arrest [None]
